FAERS Safety Report 19834016 (Version 1)
Quarter: 2021Q3

REPORT INFORMATION
  Report Type: Report from Study
  Country: BR (occurrence: BR)
  Receive Date: 20210914
  Receipt Date: 20210914
  Transmission Date: 20211014
  Serious: Yes (Hospitalization, Other)
  Sender: FDA-Public Use
  Company Number: BR-TAKEDA-BR202024075

PATIENT
  Age: 31 Year
  Sex: Male
  Weight: 88 kg

DRUGS (1)
  1. HEMO?8R [Suspect]
     Active Substance: ANTIHEMOPHILIC FACTOR, HUMAN RECOMBINANT
     Indication: FACTOR VIII DEFICIENCY
     Dosage: 30000 INTERNATIONAL UNIT, 3/WEEK
     Route: 042

REACTIONS (6)
  - Haemothorax [Recovered/Resolved]
  - Haematoma [Recovered/Resolved]
  - Hospitalisation [Unknown]
  - Inappropriate schedule of product administration [Unknown]
  - Anxiety [Recovering/Resolving]
  - Groin pain [Recovered/Resolved]

NARRATIVE: CASE EVENT DATE: 202001
